FAERS Safety Report 8980503 (Version 5)
Quarter: 2013Q1

REPORT INFORMATION
  Report Type: Spontaneous
  Country: JP (occurrence: JP)
  Receive Date: 20121221
  Receipt Date: 20130306
  Transmission Date: 20140127
  Serious: Yes (Other)
  Sender: FDA-Public Use
  Company Number: JP-PFIZER INC-2012322376

PATIENT
  Age: 62 Year
  Sex: Female

DRUGS (7)
  1. ADRIAMYCIN [Suspect]
     Indication: BREAST CANCER
     Dosage: 240 MG, UNK
  2. FLUOROURACIL [Suspect]
     Indication: BREAST CANCER
     Dosage: 1.4 G, UNK
  3. PACLITAXEL [Suspect]
     Indication: BREAST CANCER
     Dosage: 1080 MG, UNK
  4. TAMOXIFEN [Suspect]
     Indication: BREAST CANCER
     Dosage: 20 MG, 1X/DAY
  5. ANASTROZOLE [Suspect]
     Indication: BREAST CANCER
     Dosage: 1 MG, 1X/DAY
  6. CYCLOPHOSPHAMIDE [Suspect]
     Indication: BREAST CANCER
     Dosage: 1.4 G, UNK
  7. EXEMESTANE [Concomitant]
     Indication: BREAST CANCER
     Dosage: 25 MG, 1X/DAY

REACTIONS (2)
  - Second primary malignancy [Unknown]
  - Myelodysplastic syndrome [Unknown]
